FAERS Safety Report 4309769-8 (Version None)
Quarter: 2004Q1

REPORT INFORMATION
  Report Type: 
  Country: None (occurrence: None)
  Receive Date: 20040301
  Receipt Date: 20040220
  Transmission Date: 20041129
  Serious: Yes (Other)
  Sender: FDA-Public Use
  Company Number: US-JNJFOC-20040205186

PATIENT
  Age: 23 Year
  Sex: Female
  Weight: 57.1532 kg

DRUGS (3)
  1. ORTHO TRI-CYCLEN [Suspect]
     Indication: CONTRACEPTION
     Dosage: 1 DOSE (S), 1 IN 1 DAY, ORAL
     Route: 048
     Dates: start: 20010101
  2. INTRON A (INTERFERON ALFA-2B) SOLUTION [Concomitant]
  3. REBETOL [Concomitant]

REACTIONS (5)
  - BLEEDING PERIPARTUM [None]
  - BLIGHTED OVUM [None]
  - COMPLICATIONS OF MATERNAL EXPOSURE TO THERAPEUTIC DRUGS [None]
  - MATERNAL DRUGS AFFECTING FOETUS [None]
  - PREGNANCY ON ORAL CONTRACEPTIVE [None]
